FAERS Safety Report 7502644-7 (Version None)
Quarter: 2011Q2

REPORT INFORMATION
  Report Type: 
  Country: None (occurrence: None)
  Receive Date: 20110525
  Receipt Date: 20110511
  Transmission Date: 20111010
  Serious: Yes (Other)
  Sender: FDA-Public Use
  Company Number: PHHY2010BR78720

PATIENT
  Sex: Female

DRUGS (4)
  1. DIAMICRON [Concomitant]
     Dosage: 80 MG, ONE TABLET DAILY
  2. CLONAZEPAM [Concomitant]
     Dosage: 02 MG, ONE TABLET, DAILY
     Route: 048
  3. GLICLAZIDE [Concomitant]
     Dosage: ONE TABLET, DAILY
     Route: 048
  4. RASILEZ AMLO [Suspect]
     Dosage: 300/10MG, ONE DAILY

REACTIONS (5)
  - FEELING ABNORMAL [None]
  - DIZZINESS [None]
  - BLOOD PRESSURE INCREASED [None]
  - OEDEMA PERIPHERAL [None]
  - HEAD DISCOMFORT [None]
